FAERS Safety Report 16628321 (Version 1)
Quarter: 2019Q3

REPORT INFORMATION
  Report Type: Spontaneous
  Country: US (occurrence: US)
  Receive Date: 20190724
  Receipt Date: 20190724
  Transmission Date: 20191004
  Serious: No
  Sender: FDA-Public Use
  Company Number: None

PATIENT
  Age: 55 Year
  Sex: Female
  Weight: 81 kg

DRUGS (1)
  1. LAMOTRIGINE. [Suspect]
     Active Substance: LAMOTRIGINE
     Indication: DEPRESSION
     Dosage: ?          QUANTITY:1 TABLET(S);OTHER FREQUENCY:AT DINNER WITH FOO;?
     Route: 048

REACTIONS (2)
  - Dyspepsia [None]
  - Headache [None]

NARRATIVE: CASE EVENT DATE: 20170724
